FAERS Safety Report 11624790 (Version 1)
Quarter: 2015Q4

REPORT INFORMATION
  Report Type: Spontaneous
  Country: US (occurrence: US)
  Receive Date: 20151013
  Receipt Date: 20151013
  Transmission Date: 20160304
  Serious: Yes (Other)
  Sender: FDA-Public Use
  Company Number: US-GLAXOSMITHKLINE-US2015144639

PATIENT
  Age: 80 Year
  Sex: Female

DRUGS (2)
  1. QVAR [Suspect]
     Active Substance: BECLOMETHASONE DIPROPIONATE
     Indication: PRODUCT USED FOR UNKNOWN INDICATION
     Dosage: UNK, U
     Route: 065
  2. ADVAIR DISKUS [Suspect]
     Active Substance: FLUTICASONE PROPIONATE\SALMETEROL XINAFOATE
     Indication: ASTHMA
     Dosage: 1 PUFF(S), BID
     Route: 055
     Dates: start: 201508

REACTIONS (9)
  - Ill-defined disorder [Not Recovered/Not Resolved]
  - Reaction to drug excipients [Unknown]
  - Arthralgia [Unknown]
  - Ocular hyperaemia [Not Recovered/Not Resolved]
  - Pain in extremity [Unknown]
  - Dysphonia [Not Recovered/Not Resolved]
  - Muscle spasms [Unknown]
  - Drug effect increased [Not Recovered/Not Resolved]
  - Eye haemorrhage [Not Recovered/Not Resolved]

NARRATIVE: CASE EVENT DATE: 20151007
